FAERS Safety Report 11873261 (Version 2)
Quarter: 2016Q1

REPORT INFORMATION
  Report Type: Spontaneous
  Country: US (occurrence: US)
  Receive Date: 20151228
  Receipt Date: 20160312
  Transmission Date: 20160526
  Serious: Yes (Death)
  Sender: FDA-Public Use
  Company Number: US-ENDO PHARMACEUTICALS INC.-2015-005162

PATIENT
  Age: 52 Year
  Sex: Male
  Weight: 108.96 kg

DRUGS (1)
  1. TESTIM [Suspect]
     Active Substance: TESTOSTERONE
     Indication: ANDROGEN REPLACEMENT THERAPY
     Route: 062

REACTIONS (4)
  - Acute myocardial infarction [Fatal]
  - Coronary artery disease [Fatal]
  - Cardiac arrest [Fatal]
  - Cardiogenic shock [Fatal]

NARRATIVE: CASE EVENT DATE: 20130131
